FAERS Safety Report 6922754-2 (Version None)
Quarter: 2010Q3

REPORT INFORMATION
  Report Type: 
  Country: None (occurrence: None)
  Receive Date: 20100811
  Receipt Date: 20100618
  Transmission Date: 20110219
  Serious: Yes (Other)
  Sender: FDA-Public Use
  Company Number: DSA_65290_2010

PATIENT
  Sex: Female

DRUGS (1)
  1. PHENERGAN [Suspect]
     Indication: MOTION SICKNESS
     Dosage: (1 DF, ORAL)
     Route: 048

REACTIONS (5)
  - BONE MARROW DISORDER [None]
  - CYANOSIS [None]
  - EYE ROLLING [None]
  - HYPOTENSION [None]
  - PLATELET COUNT DECREASED [None]
